FAERS Safety Report 6173702-7 (Version None)
Quarter: 2009Q2

REPORT INFORMATION
  Report Type: 
  Country: None (occurrence: None)
  Receive Date: 20090430
  Receipt Date: 20090422
  Transmission Date: 20091009
  Serious: Yes (Hospitalization, Other)
  Sender: FDA-Public Use
  Company Number: PHBS2009CA00876

PATIENT
  Sex: Male

DRUGS (3)
  1. FAMCICLOVIR [Suspect]
     Indication: ANTIVIRAL PROPHYLAXIS
     Dosage: 500 MG, BID
     Route: 048
     Dates: start: 20060602, end: 20070405
  2. PENTAMIDINE ISETHIONATE [Concomitant]
     Dosage: UNK
  3. IMATINIB MESYLATE [Concomitant]
     Dosage: 200MG PER DAY

REACTIONS (3)
  - HERPES ZOSTER [None]
  - MENINGITIS VIRAL [None]
  - TREATMENT NONCOMPLIANCE [None]
